FAERS Safety Report 6374067-8 (Version None)
Quarter: 2009Q3

REPORT INFORMATION
  Report Type: 
  Country: None (occurrence: None)
  Receive Date: 20090924
  Receipt Date: 20090706
  Transmission Date: 20100115
  Serious: No
  Sender: FDA-Public Use
  Company Number: US-ASTRAZENECA-2009UW18639

PATIENT
  Age: 23 Year
  Sex: Male

DRUGS (2)
  1. SEROQUEL XR [Suspect]
     Route: 048
  2. CELEXA [Concomitant]

REACTIONS (2)
  - HALLUCINATION [None]
  - MUSCLE TWITCHING [None]
